FAERS Safety Report 5832498-6 (Version None)
Quarter: 2008Q3

REPORT INFORMATION
  Report Type: 
  Country: None (occurrence: None)
  Receive Date: 20080804
  Receipt Date: 20080722
  Transmission Date: 20090109
  Serious: Yes (Hospitalization)
  Sender: FDA-Public Use
  Company Number: FR-NOVOPROD-276310

PATIENT
  Age: 26 Year
  Sex: Male
  Weight: 60 kg

DRUGS (5)
  1. NORDITROPIN [Suspect]
     Indication: GROWTH HORMONE DEFICIENCY
     Route: 058
     Dates: start: 20050101, end: 20060201
  2. NORDITROPIN [Suspect]
     Route: 058
  3. LEVOTHYROX [Concomitant]
     Dosage: 175 UG, UNK
     Dates: start: 20070201
  4. HYDROCORTISONE [Concomitant]
     Dosage: 20 MG, QD
     Dates: start: 20070201
  5. HYDROCORTISONE [Concomitant]
     Dosage: 60 MG, QD

REACTIONS (2)
  - ASTHENIA [None]
  - PYREXIA [None]
